FAERS Safety Report 22961249 (Version 3)
Quarter: 2024Q4

REPORT INFORMATION
  Report Type: Spontaneous
  Country: US (occurrence: US)
  Receive Date: 20230920
  Receipt Date: 20241204
  Transmission Date: 20250115
  Serious: No
  Sender: SANOFI AVENTIS
  Company Number: US-SA-SAC20230914000631

PATIENT
  Age: 9 Year
  Sex: Female

DRUGS (1)
  1. DUPIXENT [Suspect]
     Active Substance: DUPILUMAB
     Indication: Dermatitis allergic
     Dosage: 200 MG, QOW
     Route: 058
     Dates: start: 202111

REACTIONS (8)
  - Scratch [Unknown]
  - Lip dry [Unknown]
  - Emotional disorder [Unknown]
  - Dry skin [Unknown]
  - Insomnia [Unknown]
  - Pruritus [Unknown]
  - Skin exfoliation [Unknown]
  - Hypersensitivity [Unknown]
